FAERS Safety Report 9055978 (Version 2)
Quarter: 2013Q1

REPORT INFORMATION
  Report Type: Spontaneous
  Country: AU (occurrence: AU)
  Receive Date: 20130205
  Receipt Date: 20130228
  Transmission Date: 20140127
  Serious: Yes (Hospitalization, Other)
  Sender: FDA-Public Use
  Company Number: PHHY2013AU009635

PATIENT
  Age: 74 None
  Sex: Male

DRUGS (4)
  1. ACLASTA [Suspect]
     Dosage: 5 MG, UNK
     Route: 042
     Dates: start: 20120202
  2. ACLASTA [Suspect]
     Dosage: 5 MG, UNK
     Route: 042
     Dates: start: 20130131
  3. WARFARIN [Concomitant]
     Dosage: UNK
  4. ASPIRIN [Concomitant]

REACTIONS (6)
  - Transient ischaemic attack [Recovered/Resolved]
  - Heart rate irregular [Recovered/Resolved]
  - Subdural haematoma [Recovered/Resolved]
  - Blood pressure increased [Recovered/Resolved]
  - Blood cholesterol increased [Unknown]
  - Headache [Recovered/Resolved]
